FAERS Safety Report 5178934-2 (Version None)
Quarter: 2006Q4

REPORT INFORMATION
  Report Type: 
  Country: None (occurrence: None)
  Receive Date: 20061213
  Receipt Date: 20061213
  Transmission Date: 20070319
  Serious: Yes (Hospitalization)
  Sender: FDA-Public Use
  Company Number: None

PATIENT
  Age: 74 Year
  Sex: Male
  Weight: 56.5 kg

DRUGS (3)
  1. DILTIAZEM [Suspect]
     Indication: CORONARY ARTERY DISEASE
     Dosage: 180MG  QD PO
     Route: 048
  2. DILTIAZEM [Suspect]
     Indication: HYPERTENSION
     Dosage: 180MG  QD PO
     Route: 048
  3. TERAZOSIM [Suspect]
     Indication: HYPERTENSION
     Dosage: 4MG  QD PO
     Route: 048

REACTIONS (12)
  - BLOOD PRESSURE SYSTOLIC DECREASED [None]
  - CARDIAC FAILURE CONGESTIVE [None]
  - CORONARY ARTERY DISEASE [None]
  - DIZZINESS [None]
  - DYSPNOEA [None]
  - DYSPNOEA EXERTIONAL [None]
  - GASTROINTESTINAL HAEMORRHAGE [None]
  - HYPOTENSION [None]
  - MALAISE [None]
  - OVERDOSE [None]
  - PNEUMONIA ASPIRATION [None]
  - URINARY RETENTION [None]
